FAERS Safety Report 9140979 (Version 2)
Quarter: 2013Q2

REPORT INFORMATION
  Report Type: Spontaneous
  Country: US (occurrence: US)
  Receive Date: 20130305
  Receipt Date: 20130510
  Transmission Date: 20140414
  Serious: No
  Sender: FDA-Public Use
  Company Number: US-ASTRAZENECA-2013SE07770

PATIENT
  Age: 70 Year
  Sex: Male

DRUGS (1)
  1. FASLODEX [Suspect]
     Indication: BREAST CANCER MALE
     Route: 030
     Dates: start: 20081218

REACTIONS (2)
  - Bone pain [Not Recovered/Not Resolved]
  - Gynaecomastia [Not Recovered/Not Resolved]
